FAERS Safety Report 7927746-2 (Version None)
Quarter: 2011Q4

REPORT INFORMATION
  Report Type: 
  Country: None (occurrence: None)
  Receive Date: 20111118
  Receipt Date: 20110505
  Transmission Date: 20120403
  Serious: No
  Sender: FDA-Public Use
  Company Number: US-BRISTOL-MYERS SQUIBB COMPANY-15721939

PATIENT
  Age: 59 Year
  Sex: Female

DRUGS (1)
  1. METFORMIN HCL [Suspect]
     Dates: start: 20110502, end: 20110503

REACTIONS (2)
  - DIARRHOEA [None]
  - ABDOMINAL DISTENSION [None]
